FAERS Safety Report 19001723 (Version 1)
Quarter: 2021Q1

REPORT INFORMATION
  Report Type: Spontaneous
  Country: US (occurrence: US)
  Receive Date: 20210312
  Receipt Date: 20210312
  Transmission Date: 20210420
  Serious: No
  Sender: FDA-Public Use
  Company Number: US-FARMAPROD-202012-1776

PATIENT
  Sex: Female
  Weight: 55.39 kg

DRUGS (19)
  1. ASPIRINE [Concomitant]
     Active Substance: ASPIRIN
  2. VITAMINE D?400 [Concomitant]
  3. VALTREX [Concomitant]
     Active Substance: VALACYCLOVIR HYDROCHLORIDE
  4. CRESTOR [Concomitant]
     Active Substance: ROSUVASTATIN CALCIUM
  5. OXERVATE [Suspect]
     Active Substance: CENEGERMIN-BKBJ
     Indication: HYPOAESTHESIA EYE
  6. TRAVATAN [Concomitant]
     Active Substance: TRAVOPROST
  7. OXERVATE [Suspect]
     Active Substance: CENEGERMIN-BKBJ
     Indication: NEUROTROPHIC KERATOPATHY
     Route: 047
     Dates: start: 20201217
  8. PRED FORTE [Concomitant]
     Active Substance: PREDNISOLONE ACETATE
  9. FISH OIL [Concomitant]
     Active Substance: FISH OIL
     Dosage: 1600 MG/5 ML LIQUID
  10. LINZESS [Concomitant]
     Active Substance: LINACLOTIDE
  11. BUPROPION HYDROCHLORIDE. [Concomitant]
     Active Substance: BUPROPION HYDROCHLORIDE
  12. BUDESONIDE. [Concomitant]
     Active Substance: BUDESONIDE
     Dosage: 0.5 MG/2 ML AMPUL/NEBULATOR
  13. TOPAMAX [Concomitant]
     Active Substance: TOPIRAMATE
  14. ADDERALL [Concomitant]
     Active Substance: AMPHETAMINE ASPARTATE\AMPHETAMINE SULFATE\DEXTROAMPHETAMINE SACCHARATE\DEXTROAMPHETAMINE SULFATE
  15. VITAMINE B12 [Concomitant]
     Active Substance: CYANOCOBALAMIN
  16. ZETIA [Concomitant]
     Active Substance: EZETIMIBE
  17. RESTASIS [Concomitant]
     Active Substance: CYCLOSPORINE
  18. ESTRING [Concomitant]
     Active Substance: ESTRADIOL
  19. COSAMIN [Concomitant]
     Dosage: 500?400 MG

REACTIONS (1)
  - Eye pain [Unknown]
